FAERS Safety Report 12348039 (Version 1)
Quarter: 2016Q2

REPORT INFORMATION
  Report Type: Spontaneous
  Country: US (occurrence: US)
  Receive Date: 20160509
  Receipt Date: 20160509
  Transmission Date: 20160815
  Serious: No
  Sender: FDA-Public Use
  Company Number: US-BAYER-2016-088910

PATIENT
  Age: 36 Year
  Sex: Male

DRUGS (3)
  1. MUCINEX [Concomitant]
     Active Substance: GUAIFENESIN
  2. CLARITIN-D 24 HOUR [Suspect]
     Active Substance: LORATADINE\PSEUDOEPHEDRINE SULFATE
     Indication: MULTIPLE ALLERGIES
     Dosage: 1 TABLET DAILY BUT TOOK ANOTHER ONE THINKING IT WAS TYLENOL BY MOUTH
     Dates: start: 20160504, end: 20160506
  3. CLARITIN [Suspect]
     Active Substance: LORATADINE

REACTIONS (2)
  - Product use issue [None]
  - Tachycardia [Not Recovered/Not Resolved]

NARRATIVE: CASE EVENT DATE: 20160506
